FAERS Safety Report 8211330-X (Version None)
Quarter: 2012Q1

REPORT INFORMATION
  Report Type: 
  Country: None (occurrence: None)
  Receive Date: 20120315
  Receipt Date: 20120315
  Transmission Date: 20120608
  Serious: No
  Sender: FDA-Public Use
  Company Number: None

PATIENT
  Sex: Female

DRUGS (1)
  1. HUMIRA [Suspect]
     Indication: CROHN'S DISEASE
     Dosage: 40MG
     Route: 058
     Dates: start: 20100601, end: 20120314

REACTIONS (4)
  - PARAESTHESIA [None]
  - DYSPNOEA [None]
  - HYPOAESTHESIA [None]
  - CHEST PAIN [None]
